FAERS Safety Report 9632949 (Version 1)
Quarter: 2013Q4

REPORT INFORMATION
  Report Type: Spontaneous
  Country: US (occurrence: US)
  Receive Date: 20131018
  Receipt Date: 20131018
  Transmission Date: 20140711
  Serious: Yes (Hospitalization, Other)
  Sender: FDA-Public Use
  Company Number: US-ABBVIE-13P-163-1156414-00

PATIENT
  Age: 58 Year
  Sex: Male
  Weight: 90.8 kg

DRUGS (3)
  1. HUMIRA [Suspect]
     Indication: PSORIASIS
     Route: 058
  2. HUMIRA [Suspect]
     Dosage: ONE WEEK AFTER 80MG DOSE
  3. HUMIRA [Suspect]
     Dates: start: 20130607, end: 201310

REACTIONS (7)
  - Systemic lupus erythematosus [Not Recovered/Not Resolved]
  - Rash [Not Recovered/Not Resolved]
  - Rash pruritic [Recovered/Resolved]
  - Psoriasis [Unknown]
  - Alanine aminotransferase increased [Unknown]
  - Drug eruption [Recovered/Resolved]
  - Antinuclear antibody positive [Unknown]
